FAERS Safety Report 15397941 (Version 1)
Quarter: 2018Q3

REPORT INFORMATION
  Report Type: Spontaneous
  Country: US (occurrence: US)
  Receive Date: 20180918
  Receipt Date: 20180918
  Transmission Date: 20181010
  Serious: No
  Sender: FDA-Public Use
  Company Number: PHEH2018US039167

PATIENT
  Sex: Female
  Weight: 57.61 kg

DRUGS (3)
  1. KISQALI [Suspect]
     Active Substance: RIBOCICLIB
     Indication: PRODUCT USED FOR UNKNOWN INDICATION
     Route: 065
  2. IBRANCE [Suspect]
     Active Substance: PALBOCICLIB
     Indication: BREAST CANCER METASTATIC
     Dosage: 125 MG, QD (ONCE IN MORNING)
     Route: 048
     Dates: start: 20180820
  3. HYDROCODONE [Concomitant]
     Active Substance: HYDROCODONE
     Indication: MUSCLE SPASMS
     Dosage: UNK UNK, PRN
     Route: 065

REACTIONS (2)
  - Nausea [Not Recovered/Not Resolved]
  - Fatigue [Unknown]

NARRATIVE: CASE EVENT DATE: 20180820
